FAERS Safety Report 22226128 (Version 1)
Quarter: 2023Q2

REPORT INFORMATION
  Report Type: Spontaneous
  Country: CN (occurrence: CN)
  Receive Date: 20230419
  Receipt Date: 20230419
  Transmission Date: 20230722
  Serious: Yes (Death, Hospitalization)
  Sender: FDA-Public Use
  Company Number: CN-STRIDES ARCOLAB LIMITED-2023SP005536

PATIENT
  Age: 34 Year
  Sex: Male

DRUGS (24)
  1. DEXAMETHASONE [Suspect]
     Active Substance: DEXAMETHASONE
     Indication: Acute lymphocytic leukaemia
     Dosage: UNK; RECEIVED VICP CHEMOTHERAPY
     Route: 065
     Dates: start: 20150616
  2. DEXAMETHASONE [Suspect]
     Active Substance: DEXAMETHASONE
     Dosage: UNK; DOSE UNKNOWN; SECOND VICP CHEMOTHERAPY
     Route: 065
     Dates: start: 20150731
  3. DEXAMETHASONE [Suspect]
     Active Substance: DEXAMETHASONE
     Dosage: UNK; DOSE UNKNOWN; VICP CHEMOTHERAPY
     Route: 065
     Dates: start: 20151020
  4. PREDNISOLONE [Suspect]
     Active Substance: PREDNISOLONE
     Indication: Acute lymphocytic leukaemia
     Dosage: UNK; RECEIVED VICP CHEMOTHERAPY
     Route: 065
     Dates: start: 20150616
  5. PREDNISOLONE [Suspect]
     Active Substance: PREDNISOLONE
     Dosage: UNK; DOSE UNKNOWN; SECOND VICP CHEMOTHERAPY
     Route: 065
     Dates: start: 20150731
  6. PREDNISOLONE [Suspect]
     Active Substance: PREDNISOLONE
     Dosage: UNK; DOSE UNKNOWN; VICP CHEMOTHERAPY
     Route: 065
     Dates: start: 20151020
  7. PREDNISOLONE [Suspect]
     Active Substance: PREDNISOLONE
     Dosage: UNK; FOURTH CHEMOTHERAPY COP REGIMEN
     Route: 065
     Dates: start: 20151227
  8. ETOPOSIDE [Suspect]
     Active Substance: ETOPOSIDE
     Indication: Acute lymphocytic leukaemia
     Dosage: UNK; RECEIVED FIFTH CHEMOTHERAPY AAE REGIMEN
     Route: 065
     Dates: start: 20160117
  9. VINDESINE [Suspect]
     Active Substance: VINDESINE
     Indication: Acute lymphocytic leukaemia
     Dosage: UNK; RECEIVED VICP CHEMOTHERAPY
     Route: 065
     Dates: start: 20150616
  10. VINDESINE [Suspect]
     Active Substance: VINDESINE
     Dosage: UNK; DOSE UNKNOWN; SECOND VICP CHEMOTHERAPY
     Route: 065
     Dates: start: 20150731
  11. VINDESINE [Suspect]
     Active Substance: VINDESINE
     Dosage: UNK; DOSE UNKNOWN; VICP CHEMOTHERAPY
     Route: 065
     Dates: start: 20151020
  12. IDARUBICIN [Suspect]
     Active Substance: IDARUBICIN
     Indication: Acute lymphocytic leukaemia
     Dosage: UNK; RECEIVED VICP CHEMOTHERAPY
     Route: 065
     Dates: start: 20150616
  13. IDARUBICIN [Suspect]
     Active Substance: IDARUBICIN
     Dosage: UNK; DOSE UNKNOWN; SECOND VICP CHEMOTHERAPY
     Route: 065
     Dates: start: 20150731
  14. IDARUBICIN [Suspect]
     Active Substance: IDARUBICIN
     Dosage: UNK; DOSE UNKNOWN; VICP CHEMOTHERAPY
     Route: 065
     Dates: start: 20151020
  15. CYCLOPHOSPHAMIDE [Suspect]
     Active Substance: CYCLOPHOSPHAMIDE
     Indication: Acute lymphocytic leukaemia
     Dosage: UNK; RECEIVED VICP CHEMOTHERAPY
     Route: 065
     Dates: start: 20150616
  16. CYCLOPHOSPHAMIDE [Suspect]
     Active Substance: CYCLOPHOSPHAMIDE
     Dosage: UNK; DOSE UNKNOWN; SECOND VICP CHEMOTHERAPY
     Route: 065
     Dates: start: 20150731
  17. CYCLOPHOSPHAMIDE [Suspect]
     Active Substance: CYCLOPHOSPHAMIDE
     Dosage: UNK; DOSE UNKNOWN; VICP CHEMOTHERAPY
     Route: 065
     Dates: start: 20151020
  18. CYCLOPHOSPHAMIDE [Suspect]
     Active Substance: CYCLOPHOSPHAMIDE
     Dosage: UNK; RECEIVED FOURTH CHEMOTHERAPY COP REGIMEN
     Route: 065
     Dates: start: 20151227
  19. IMATINIB [Suspect]
     Active Substance: IMATINIB
     Indication: Acute lymphocytic leukaemia
     Dosage: UNK
     Route: 065
     Dates: start: 20150727
  20. DASATINIB [Suspect]
     Active Substance: DASATINIB
     Indication: Acute lymphocytic leukaemia
     Dosage: UNK
     Route: 065
     Dates: start: 2015
  21. PEGASPARGASE [Suspect]
     Active Substance: PEGASPARGASE
     Indication: Acute lymphocytic leukaemia
     Dosage: UNK
     Route: 065
     Dates: start: 20151020
  22. VINCRISTINE [Suspect]
     Active Substance: VINCRISTINE
     Indication: Acute lymphocytic leukaemia
     Dosage: UNK; FOURTH CHEMOTHERAPY COP REGIMEN
     Route: 065
     Dates: start: 20151227
  23. CYTARABINE [Suspect]
     Active Substance: CYTARABINE
     Indication: Acute lymphocytic leukaemia
     Dosage: UNK; RECEIVED FIFTH CHEMOTHERAPY AAE REGIMEN
     Route: 065
     Dates: start: 20160117
  24. CLARITHROMYCIN [Suspect]
     Active Substance: CLARITHROMYCIN
     Indication: Acute lymphocytic leukaemia
     Dosage: UNK; RECEIVED FIFTH CHEMOTHERAPY AAE REGIMEN
     Route: 065
     Dates: start: 20160117

REACTIONS (5)
  - Pulmonary mucormycosis [Fatal]
  - Drug ineffective [Fatal]
  - Pneumonia [Unknown]
  - Haematological infection [Unknown]
  - Off label use [Unknown]

NARRATIVE: CASE EVENT DATE: 20151001
